FAERS Safety Report 9997216 (Version 5)
Quarter: 2014Q2

REPORT INFORMATION
  Report Type: Spontaneous
  Country: US (occurrence: US)
  Receive Date: 20140311
  Receipt Date: 20140425
  Transmission Date: 20141212
  Serious: Yes (Hospitalization)
  Sender: FDA-Public Use
  Company Number: US-BAXTER-2014BAX011014

PATIENT
  Age: 70 Year
  Sex: Male

DRUGS (8)
  1. DIANEAL LOW CALCIUM [Suspect]
     Indication: PERITONEAL DIALYSIS
     Route: 033
  2. DIANEAL LOW CALCIUM [Suspect]
     Indication: PERITONEAL DIALYSIS
     Route: 033
     Dates: start: 2011
  3. DIANEAL PD2 [Suspect]
     Indication: RENAL FAILURE CHRONIC
     Route: 033
     Dates: end: 201403
  4. DIANEAL PD2 [Suspect]
     Dosage: LAST FILL
     Route: 033
     Dates: start: 2011, end: 201403
  5. DIANEAL PD2 [Suspect]
     Route: 033
  6. DIANEAL PD2 [Suspect]
     Dosage: LAST FILL
     Route: 033
  7. EXTRANEAL [Suspect]
     Indication: RENAL FAILURE CHRONIC
     Route: 033
     Dates: start: 2011, end: 201403
  8. EXTRANEAL [Suspect]
     Route: 033

REACTIONS (7)
  - Diabetes mellitus [Not Recovered/Not Resolved]
  - Extremity necrosis [Recovered/Resolved]
  - Mental status changes [Recovered/Resolved]
  - Gangrene [Unknown]
  - Clostridium difficile infection [Recovering/Resolving]
  - Peritoneal dialysis complication [Unknown]
  - Accident [Unknown]
